FAERS Safety Report 14899323 (Version 3)
Quarter: 2018Q4

REPORT INFORMATION
  Report Type: Spontaneous
  Country: CA (occurrence: CA)
  Receive Date: 20180516
  Receipt Date: 20181206
  Transmission Date: 20190204
  Serious: Yes (Disabling, Other)
  Sender: FDA-Public Use
  Company Number: CA-CONCORDIA PHARMACEUTICALS INC.-GSH201805-001571

PATIENT
  Sex: Female

DRUGS (4)
  1. ARAVA [Suspect]
     Active Substance: LEFLUNOMIDE
     Indication: RHEUMATOID ARTHRITIS
     Route: 048
  2. METHOTREXATE. [Concomitant]
     Active Substance: METHOTREXATE
  3. SULFASALAZINE. [Concomitant]
     Active Substance: SULFASALAZINE
  4. PLAQUENIL [Suspect]
     Active Substance: HYDROXYCHLOROQUINE SULFATE
     Indication: RHEUMATOID ARTHRITIS
     Dosage: 400 MG FOR 5 DAYS PER WEEK
     Route: 065

REACTIONS (10)
  - Rheumatoid arthritis [Unknown]
  - Joint noise [Unknown]
  - Arthralgia [Unknown]
  - Asthenia [Unknown]
  - Joint lock [Unknown]
  - Pain [Unknown]
  - Arthropathy [Unknown]
  - Fibromyalgia [Unknown]
  - Depression [Unknown]
  - Gait disturbance [Unknown]
